FAERS Safety Report 15077194 (Version 1)
Quarter: 2018Q2

REPORT INFORMATION
  Report Type: Spontaneous
  Country: US (occurrence: US)
  Receive Date: 20180607
  Receipt Date: 20180607
  Transmission Date: 20180711
  Serious: Yes (Hospitalization, Disabling, Other)
  Sender: FDA-Public Use
  Company Number: None

PATIENT
  Age: 29 Year
  Sex: Male
  Weight: 75 kg

DRUGS (2)
  1. DERMOVATE [Suspect]
     Active Substance: CLOBETASOL
     Indication: DERMATITIS ATOPIC
     Dosage: ?          OTHER FREQUENCY:AS PRESCRIBED;?
     Route: 061
     Dates: start: 19890101, end: 20120501
  2. HYDROCORTISONE. [Suspect]
     Active Substance: HYDROCORTISONE

REACTIONS (7)
  - Eczema [None]
  - Skin exfoliation [None]
  - Steroid withdrawal syndrome [None]
  - Skin atrophy [None]
  - Pain of skin [None]
  - Dermatitis [None]
  - Gastrointestinal disorder [None]

NARRATIVE: CASE EVENT DATE: 20120501
